FAERS Safety Report 25522272 (Version 1)
Quarter: 2025Q3

REPORT INFORMATION
  Report Type: Report from Study
  Country: US (occurrence: US)
  Receive Date: 20250707
  Receipt Date: 20250707
  Transmission Date: 20251020
  Serious: Yes (Other)
  Sender: ROCHE
  Company Number: US-ROCHE-10000309057

PATIENT
  Age: 32 Year
  Sex: Male

DRUGS (2)
  1. RITUXAN [Suspect]
     Active Substance: RITUXIMAB
     Indication: Nodular lymphocyte predominant Hodgkin lymphoma
     Dosage: ANTICIPATED DATE OF TREATMENT: 19-JUN-2025
     Route: 065
  2. RITUXAN [Suspect]
     Active Substance: RITUXIMAB
     Indication: Neoplasm malignant
     Dosage: ANTICIPATED DATE OF TREATMENT: 19-JUN-2025
     Route: 065

REACTIONS (2)
  - Off label use [Unknown]
  - Myocardial infarction [Unknown]
